FAERS Safety Report 5671187-8 (Version None)
Quarter: 2008Q1

REPORT INFORMATION
  Report Type: 
  Country: None (occurrence: None)
  Receive Date: 20080318
  Receipt Date: 20080311
  Transmission Date: 20080703
  Serious: Yes (Other)
  Sender: FDA-Public Use
  Company Number: CA-ASTRAZENECA-2008UW01411

PATIENT
  Age: 64 Year
  Sex: Female
  Weight: 59.5 kg

DRUGS (4)
  1. CRESTOR [Suspect]
     Indication: HYPERCHOLESTEROLAEMIA
     Route: 048
     Dates: start: 20071001
  2. NEXIUM [Concomitant]
     Route: 048
     Dates: start: 20020101
  3. VERAPAMIL [Concomitant]
     Indication: HEART RATE ABNORMAL
     Route: 048
  4. PREMARIN [Concomitant]
     Indication: HOT FLUSH
     Route: 048

REACTIONS (2)
  - MEMORY IMPAIRMENT [None]
  - VISION BLURRED [None]
